FAERS Safety Report 23604192 (Version 2)
Quarter: 2024Q1

REPORT INFORMATION
  Report Type: Spontaneous
  Country: JP (occurrence: JP)
  Receive Date: 20240307
  Receipt Date: 20240318
  Transmission Date: 20240409
  Serious: Yes (Life-Threatening, Hospitalization, Other)
  Sender: FDA-Public Use
  Company Number: JP-ASTELLAS-2024JP001091

PATIENT
  Age: 79 Year
  Sex: Male

DRUGS (3)
  1. XTANDI [Suspect]
     Active Substance: ENZALUTAMIDE
     Indication: Hormone-dependent prostate cancer
     Route: 048
     Dates: start: 20231211, end: 20240125
  2. XTANDI [Suspect]
     Active Substance: ENZALUTAMIDE
     Route: 048
     Dates: start: 20240203
  3. VIBEGRON [Concomitant]
     Active Substance: VIBEGRON
     Indication: Hypertonic bladder
     Route: 048
     Dates: start: 20240122

REACTIONS (3)
  - Traumatic haemothorax [Recovering/Resolving]
  - Fall [Recovering/Resolving]
  - Rib fracture [Recovering/Resolving]

NARRATIVE: CASE EVENT DATE: 20240125
